FAERS Safety Report 5506563-7 (Version None)
Quarter: 2007Q4

REPORT INFORMATION
  Report Type: 
  Country: None (occurrence: None)
  Receive Date: 20071105
  Receipt Date: 20071029
  Transmission Date: 20080405
  Serious: Yes (Hospitalization)
  Sender: FDA-Public Use
  Company Number: US-PURDUE-USA_2007_0029932

PATIENT
  Age: 80 Year
  Sex: Female

DRUGS (1)
  1. MS CONTIN [Suspect]
     Indication: DRUG USE FOR UNKNOWN INDICATION
     Dosage: UNK MG, UNK
     Route: 048

REACTIONS (8)
  - DIARRHOEA [None]
  - DRUG HYPERSENSITIVITY [None]
  - HOSPITALISATION [None]
  - INTENTIONAL DRUG MISUSE [None]
  - NAUSEA [None]
  - RASH [None]
  - VOMITING [None]
  - WEIGHT DECREASED [None]
